FAERS Safety Report 19886022 (Version 2)
Quarter: 2021Q4

REPORT INFORMATION
  Report Type: Report from Study
  Country: JP (occurrence: JP)
  Receive Date: 20210928
  Receipt Date: 20211015
  Transmission Date: 20220303
  Serious: No
  Sender: FDA-Public Use
  Company Number: NVSJ2021JP013979

PATIENT
  Age: 41 Year
  Sex: Female
  Weight: 81 kg

DRUGS (9)
  1. COSENTYX [Suspect]
     Active Substance: SECUKINUMAB
     Indication: Ankylosing spondylitis
     Dosage: 150 MG, QW
     Route: 058
     Dates: start: 20200515, end: 20200612
  2. COSENTYX [Suspect]
     Active Substance: SECUKINUMAB
     Dosage: 150 MG, Q4W
     Route: 058
     Dates: start: 20200710, end: 20201002
  3. COSENTYX [Suspect]
     Active Substance: SECUKINUMAB
  4. COLCHICINE [Concomitant]
     Active Substance: COLCHICINE
     Indication: Gout
     Dosage: UNK
     Route: 065
     Dates: start: 20181126
  5. SULFASALAZINE [Concomitant]
     Active Substance: SULFASALAZINE
     Indication: Rheumatoid arthritis
     Dosage: UNK
     Route: 065
     Dates: start: 20191225
  6. LYRICA [Concomitant]
     Active Substance: PREGABALIN
     Indication: Post herpetic neuralgia
     Dosage: UNK
     Route: 048
     Dates: start: 20180925
  7. CELECOXIB [Concomitant]
     Active Substance: CELECOXIB
     Indication: Rheumatoid arthritis
     Dosage: UNK
     Route: 048
     Dates: start: 20191225
  8. TRAMADOL HYDROCHLORIDE [Concomitant]
     Active Substance: TRAMADOL HYDROCHLORIDE
     Indication: Post herpetic neuralgia
     Dosage: UNK
     Route: 048
     Dates: start: 20181204
  9. NORSPAN [Concomitant]
     Active Substance: BUPRENORPHINE
     Indication: Rheumatoid arthritis
     Dosage: UNK
     Route: 061
     Dates: start: 20200417

REACTIONS (3)
  - Acute haemorrhagic conjunctivitis [Unknown]
  - Urticaria [Recovering/Resolving]
  - Hot flush [Unknown]

NARRATIVE: CASE EVENT DATE: 20200729
